FAERS Safety Report 8773648 (Version 2)
Quarter: 2012Q4

REPORT INFORMATION
  Report Type: 
  Country: JP (occurrence: JP)
  Receive Date: 20120907
  Receipt Date: 20121003
  Transmission Date: 20130627
  Serious: Yes (Other)
  Sender: FDA-Public Use
  Company Number: JP-ASTRAZENECA-2012SE65894

PATIENT

DRUGS (1)
  1. LIDOCAINE [Suspect]
     Indication: ARRHYTHMIA
     Dosage: Dose unknown
     Route: 042

REACTIONS (2)
  - Overdose [Unknown]
  - Convulsion [Unknown]
